FAERS Safety Report 8128962-X (Version None)
Quarter: 2012Q1

REPORT INFORMATION
  Report Type: 
  Country: None (occurrence: None)
  Receive Date: 20120210
  Receipt Date: 20110726
  Transmission Date: 20120608
  Serious: Yes (Other)
  Sender: FDA-Public Use
  Company Number: US-BRISTOL-MYERS SQUIBB COMPANY-15874803

PATIENT
  Age: 47 Year
  Sex: Female

DRUGS (3)
  1. SALINE [Suspect]
  2. ORENCIA [Suspect]
     Dosage: DOSAGE: 750MG :1ST DOSE.
  3. METHOTREXATE [Concomitant]

REACTIONS (8)
  - PARAESTHESIA [None]
  - DYSPNOEA [None]
  - CHILLS [None]
  - FEELING COLD [None]
  - GASTROOESOPHAGEAL REFLUX DISEASE [None]
  - INJECTION SITE DISCOLOURATION [None]
  - PRURITUS [None]
  - OROPHARYNGEAL DISCOMFORT [None]
